FAERS Safety Report 6138645-3 (Version None)
Quarter: 2009Q1

REPORT INFORMATION
  Report Type: 
  Country: None (occurrence: None)
  Receive Date: 20090331
  Receipt Date: 20090323
  Transmission Date: 20090719
  Serious: Yes (Death)
  Sender: FDA-Public Use
  Company Number: NZ-CELGENEUS-118-20785-09010137

PATIENT
  Sex: Male
  Weight: 67 kg

DRUGS (6)
  1. THALIDOMIDE [Suspect]
     Route: 048
     Dates: start: 20080701, end: 20090103
  2. DEXAMETHASONE [Suspect]
     Route: 065
     Dates: start: 20080701, end: 20090103
  3. ACYCLOVIR [Concomitant]
     Indication: DRUG USE FOR UNKNOWN INDICATION
     Route: 065
     Dates: start: 20080701, end: 20090103
  4. METOPROLOL [Concomitant]
     Indication: DRUG USE FOR UNKNOWN INDICATION
     Route: 065
     Dates: end: 20090103
  5. ALLOPURINOL [Concomitant]
     Indication: DRUG USE FOR UNKNOWN INDICATION
     Route: 065
     Dates: start: 20070901, end: 20090103
  6. VITAMIN B-12 [Concomitant]
     Indication: DRUG USE FOR UNKNOWN INDICATION
     Route: 050
     Dates: end: 20090103

REACTIONS (1)
  - STAPHYLOCOCCAL SEPSIS [None]
